FAERS Safety Report 5232114-0 (Version None)
Quarter: 2007Q1

REPORT INFORMATION
  Report Type: 
  Country: None (occurrence: None)
  Receive Date: 20061201
  Receipt Date: 20060829
  Transmission Date: 20070707
  Serious: No
  Sender: FDA-Public Use
  Company Number: US200608006657

PATIENT
  Age: 70 Year
  Sex: Female

DRUGS (7)
  1. CYMBALTA [Suspect]
     Indication: DEPRESSION
     Dosage: 60 MG
     Dates: start: 20060701
  2. NEXIUM [Concomitant]
  3. LISINOPRIL [Concomitant]
  4. NORVASC [Concomitant]
  5. LIPITOR [Concomitant]
  6. XANAX /USA/ (ALPRAZOLAM) [Concomitant]
  7. GLYBURIDE AND METFORMIN HCL [Concomitant]

REACTIONS (1)
  - BLOOD GLUCOSE INCREASED [None]
